FAERS Safety Report 9564586 (Version 2)
Quarter: 2013Q4

REPORT INFORMATION
  Report Type: Spontaneous
  Country: US (occurrence: US)
  Receive Date: 20130930
  Receipt Date: 20131015
  Transmission Date: 20140711
  Serious: Yes (Other)
  Sender: FDA-Public Use
  Company Number: US-PFIZER INC-2013276652

PATIENT
  Age: 68 Year
  Sex: Male
  Weight: 67.12 kg

DRUGS (17)
  1. SUTENT [Suspect]
     Indication: RENAL CANCER METASTATIC
     Dosage: 50 MG, DAILY
     Route: 048
     Dates: start: 20120419, end: 20120530
  2. SUTENT [Suspect]
     Dosage: 50 MG, DAILY
     Route: 048
     Dates: end: 20130911
  3. SUTENT [Suspect]
     Dosage: 50 MG, DAILY
     Route: 048
     Dates: end: 20130927
  4. HYDROCODONE W/ACETAMINOPHEN [Concomitant]
     Dosage: HYDROCODONE BITARTRATE (5MG), PARACETAMOL (325 MG), Q 6HOURS PRN
     Route: 048
  5. HYDROCODONE W/ACETAMINOPHEN [Concomitant]
     Dosage: HYDROCODONE BITARTRATE (5MG), PARACETAMOL (500 MG), Q 4HOURS PRN
     Route: 048
     Dates: start: 20120402, end: 20130814
  6. OMEPRAZOLE [Concomitant]
     Dosage: 40 MG, DAILY
     Route: 048
     Dates: start: 20120430, end: 20130814
  7. DEXAMETHASONE [Concomitant]
     Dosage: 4 MG,Q 6 HOURS
     Route: 048
     Dates: start: 20120402, end: 20120717
  8. VICODIN [Concomitant]
     Dosage: UNK
  9. ADVAIR DISKUS [Concomitant]
     Dosage: UNK (BREATH ACTIVATED INHALATION B.I.D. PRN)
     Route: 055
     Dates: end: 20120911
  10. PROMETHAZINE [Concomitant]
     Dosage: UNK
  11. CIPROFLOXACIN HYDROCHLORIDE [Concomitant]
     Dosage: 500 MG, 2X/DAY
     Route: 048
     Dates: start: 20130717, end: 20130814
  12. KLOR-CON 10 [Concomitant]
     Dosage: 10 MEQ, 2X/DAY
     Route: 048
     Dates: start: 20120731, end: 20130326
  13. ATIVAN [Concomitant]
     Dosage: 1 MG, AS NEEDED (1 (1 MG) TABLET ORAL T.I.D. PRN)
     Route: 048
  14. COMPAZINE [Concomitant]
     Dosage: 10 MG, AS NEEDED (10 MG TABLET 6X/D PRN)
  15. K-DUR [Concomitant]
     Dosage: 10 MEQ, 2X/DAY
     Route: 048
     Dates: end: 20130326
  16. MIRTAZAPINE [Concomitant]
     Dosage: 30 MG, 1X/DAY (1.5 (30 MG) TABLET ORAL AT BEDTIME)
     Route: 048
     Dates: start: 20120430, end: 20120911
  17. PROMETHAZINE HYDROCHLORIDE [Concomitant]
     Dosage: UNK
     Route: 048
     Dates: end: 20120911

REACTIONS (10)
  - Cancer pain [Unknown]
  - Skin necrosis [Unknown]
  - Long QT syndrome [Not Recovered/Not Resolved]
  - Disease progression [Not Recovered/Not Resolved]
  - Renal cancer metastatic [Not Recovered/Not Resolved]
  - Pallor [Unknown]
  - Ear pain [Unknown]
  - Otorrhoea [Unknown]
  - Infection [Unknown]
  - Anaemia [Not Recovered/Not Resolved]
